FAERS Safety Report 15837412 (Version 1)
Quarter: 2019Q1

REPORT INFORMATION
  Report Type: Spontaneous
  Country: US (occurrence: US)
  Receive Date: 20190117
  Receipt Date: 20190117
  Transmission Date: 20190417
  Serious: No
  Sender: FDA-Public Use
  Company Number: US-ENDO PHARMACEUTICALS INC-2018-024022

PATIENT
  Sex: Male
  Weight: 99.77 kg

DRUGS (3)
  1. OXYCODONE HYDROCHLORIDE, ACETAMINOPHEN [Concomitant]
     Indication: INTERVERTEBRAL DISC PROTRUSION
  2. OXYCODONE HYDROCHLORIDE, ACETAMINOPHEN [Concomitant]
     Indication: BACK PAIN
  3. OPANA ER [Suspect]
     Active Substance: OXYMORPHONE HYDROCHLORIDE
     Indication: PRODUCT USED FOR UNKNOWN INDICATION
     Dosage: UNK UNKNOWN, UNKNOWN
     Route: 065

REACTIONS (1)
  - Drug ineffective [Recovered/Resolved]
